FAERS Safety Report 9999216 (Version 1)
Quarter: 2014Q1

REPORT INFORMATION
  Report Type: Spontaneous
  Country: US (occurrence: None)
  Receive Date: 20140311
  Receipt Date: 20140311
  Transmission Date: 20141002
  Serious: Yes (Life-Threatening, Hospitalization)
  Sender: FDA-Public Use
  Company Number: None

PATIENT
  Age: 59 Year
  Sex: Male
  Weight: 90.72 kg

DRUGS (1)
  1. TESTOSTERONE CYPIONATE [Suspect]
     Indication: BLOOD TESTOSTERONE DECREASED
     Dosage: .05CC ONCE A WEEK INTO THE MUSCLE
     Dates: start: 20130715, end: 20140106

REACTIONS (7)
  - Dyspnoea [None]
  - Chest pain [None]
  - Back pain [None]
  - Palpitations [None]
  - Blood pressure abnormal [None]
  - Ill-defined disorder [None]
  - Myocardial infarction [None]
